FAERS Safety Report 7373736-0 (Version None)
Quarter: 2011Q1

REPORT INFORMATION
  Report Type: 
  Country: None (occurrence: None)
  Receive Date: 20110325
  Receipt Date: 20101209
  Transmission Date: 20110831
  Serious: No
  Sender: FDA-Public Use
  Company Number: US-MYLANLABS-2010S1022184

PATIENT
  Age: 75 Year
  Sex: Female

DRUGS (4)
  1. COUMADIN [Concomitant]
  2. RAMIPRIL [Concomitant]
  3. LANOXIN [Concomitant]
  4. SOTALOL HYDROCHLORIDE [Suspect]
     Indication: ATRIAL FIBRILLATION
     Route: 048
     Dates: start: 20101029, end: 20101101

REACTIONS (4)
  - URTICARIA [None]
  - RASH [None]
  - DIZZINESS [None]
  - PRURITUS [None]
